FAERS Safety Report 15250960 (Version 2)
Quarter: 2018Q3

REPORT INFORMATION
  Report Type: Report from Study
  Country: PK (occurrence: PK)
  Receive Date: 20180807
  Receipt Date: 20180902
  Transmission Date: 20181010
  Serious: Yes (Death, Hospitalization)
  Sender: FDA-Public Use
  Company Number: PHHY2018PK059829

PATIENT
  Age: 60 Year
  Sex: Male

DRUGS (1)
  1. AFINITOR [Suspect]
     Active Substance: EVEROLIMUS
     Indication: NEUROENDOCRINE TUMOUR
     Dosage: 10 MG, QD
     Route: 048
     Dates: start: 20180507

REACTIONS (5)
  - Cardio-respiratory arrest [Fatal]
  - Dyspnoea [Unknown]
  - Ascites [Unknown]
  - Somnolence [Unknown]
  - Confusional state [Fatal]

NARRATIVE: CASE EVENT DATE: 20180521
